FAERS Safety Report 17117677 (Version 1)
Quarter: 2019Q4

REPORT INFORMATION
  Report Type: Spontaneous
  Country: PL (occurrence: PL)
  Receive Date: 20191205
  Receipt Date: 20191205
  Transmission Date: 20200122
  Serious: Yes (Death, Hospitalization)
  Sender: FDA-Public Use
  Company Number: PL-MYLANLABS-2019M1119729

PATIENT
  Age: 81 Year
  Sex: Female

DRUGS (2)
  1. PANTOPRAZOLE [Suspect]
     Active Substance: PANTOPRAZOLE
     Indication: UPPER GASTROINTESTINAL HAEMORRHAGE
     Dosage: 80 MILLIGRAM, QD
     Route: 042
  2. SOMATOSTATIN [Suspect]
     Active Substance: SOMATOSTATIN
     Indication: UPPER GASTROINTESTINAL HAEMORRHAGE
     Dosage: UNK

REACTIONS (6)
  - Condition aggravated [Fatal]
  - Sepsis [Fatal]
  - Anaemia [Fatal]
  - Pneumonia [Fatal]
  - Urinary tract infection [Fatal]
  - Respiratory failure [Fatal]
